FAERS Safety Report 10354660 (Version 1)
Quarter: 2014Q3

REPORT INFORMATION
  Report Type: Spontaneous
  Country: US (occurrence: None)
  Receive Date: 20140729
  Receipt Date: 20140729
  Transmission Date: 20150326
  Serious: Yes (Other)
  Sender: FDA-Public Use
  Company Number: None

PATIENT
  Age: 78 Year
  Sex: Female
  Weight: 63.5 kg

DRUGS (1)
  1. PROLIA [Suspect]
     Active Substance: DENOSUMAB
     Indication: OSTEOPOROSIS
     Dosage: 1 INJECTION EVERY 6 MONTHS

REACTIONS (8)
  - Feeling abnormal [None]
  - Pain [None]
  - Pruritus [None]
  - Asthenia [None]
  - Headache [None]
  - Myalgia [None]
  - Eczema [None]
  - Blood pressure increased [None]

NARRATIVE: CASE EVENT DATE: 20140502
